FAERS Safety Report 5338465-3 (Version None)
Quarter: 2007Q2

REPORT INFORMATION
  Report Type: 
  Country: None (occurrence: None)
  Receive Date: 20070530
  Receipt Date: 20070519
  Transmission Date: 20071010
  Serious: Yes (Hospitalization, Other)
  Sender: FDA-Public Use
  Company Number: DE-ROCHE-498733

PATIENT
  Age: 51 Year
  Sex: Female
  Weight: 45 kg

DRUGS (7)
  1. PEG-INTERFERON A-2A (RO 25-8310) [Suspect]
     Route: 058
     Dates: start: 20070126
  2. PEG-INTERFERON A-2A (RO 25-8310) [Suspect]
     Route: 058
  3. RIBAVIRIN [Suspect]
     Route: 048
     Dates: start: 20070126
  4. RIBAVIRIN [Suspect]
     Route: 048
     Dates: end: 20070315
  5. EMTRICITABINE/TENOFOVIR [Concomitant]
     Dosage: DOSE REPORTED AS 200/300 MG /DAY
     Route: 048
     Dates: start: 20051114
  6. ATAZANAVIR SULFATE [Concomitant]
     Route: 048
     Dates: start: 20051114
  7. RITONAVIR [Concomitant]
     Route: 048
     Dates: start: 20051114

REACTIONS (4)
  - ANGINA PECTORIS [None]
  - CACHEXIA [None]
  - PNEUMONIA [None]
  - THROMBOCYTOPENIA [None]
